FAERS Safety Report 23550521 (Version 5)
Quarter: 2024Q4

REPORT INFORMATION
  Report Type: Spontaneous
  Country: US (occurrence: US)
  Receive Date: 20240221
  Receipt Date: 20241106
  Transmission Date: 20250115
  Serious: No
  Sender: BRISTOL-MYERS SQUIBB COMPANY
  Company Number: US-BRISTOL-MYERS SQUIBB COMPANY-2024-022930

PATIENT
  Age: 6 Year
  Sex: Female

DRUGS (2)
  1. THALOMID [Suspect]
     Active Substance: THALIDOMIDE
     Indication: Brain neoplasm malignant
     Route: 048
     Dates: start: 20221213
  2. THALOMID [Suspect]
     Active Substance: THALIDOMIDE
     Indication: Ependymoma

REACTIONS (2)
  - Off label use [Unknown]
  - Product dose omission issue [Unknown]
